FAERS Safety Report 11630243 (Version 1)
Quarter: 2015Q4

REPORT INFORMATION
  Report Type: Spontaneous
  Country: DE (occurrence: DE)
  Receive Date: 20151014
  Receipt Date: 20151014
  Transmission Date: 20160304
  Serious: Yes (Other)
  Sender: FDA-Public Use
  Company Number: DE-MERZ NORTH AMERICA, INC.-14MRZ-00118

PATIENT
  Age: 51 Year
  Sex: Male
  Weight: 98 kg

DRUGS (8)
  1. MYDOCALM [Concomitant]
     Active Substance: TOLPERISONE
  2. AMLODIPINE MALEATE [Concomitant]
     Active Substance: AMLODIPINE MALEATE
     Indication: HYPERTENSION
     Dosage: (10 MG, 1 IN 1 D)
  3. DHC [Concomitant]
     Active Substance: DIHYDROCODEINE BITARTRATE
     Indication: PAIN
     Dosage: 3 DOSAGE FORMS (1 DOSAGE FORM, 3 IN 1 D)
  4. XEOMIN [Suspect]
     Active Substance: INCOBOTULINUMTOXINA
     Indication: TORTICOLLIS
     Route: 030
     Dates: start: 20131218, end: 20131218
  5. BELOC-ZOK FORTE [Concomitant]
     Indication: HYPERTENSION
     Dosage: 1 TABLET (1 DOSAGE FORMS, 1 IN 1 D)
  6. HYALURON [Concomitant]
     Indication: ARTHROPATHY
  7. NOVALGIN [Concomitant]
     Active Substance: METAMIZOLE SODIUM
     Indication: PAIN
     Dosage: 6 DOSAGE FORMS (2 DOSAGE FORMS, 3 IN 1 D)
  8. IBUPROFEN. [Concomitant]
     Active Substance: IBUPROFEN

REACTIONS (13)
  - Claustrophobia [Recovered/Resolved]
  - Drug hypersensitivity [Recovered/Resolved]
  - Injection site pain [Recovered/Resolved]
  - Dyspnoea [Recovered/Resolved]
  - Cardiac disorder [Recovered/Resolved]
  - Injection site erythema [Recovered/Resolved]
  - Blood pressure increased [Recovered/Resolved]
  - Hyperhidrosis [Recovered/Resolved]
  - Palpitations [Recovered/Resolved]
  - Anxiety [Recovered/Resolved]
  - Injection site swelling [Recovered/Resolved]
  - Dry eye [Recovered/Resolved]
  - Muscle spasms [Recovered/Resolved]

NARRATIVE: CASE EVENT DATE: 201312
